FAERS Safety Report 6823624-0 (Version None)
Quarter: 2010Q3

REPORT INFORMATION
  Report Type: 
  Country: None (occurrence: None)
  Receive Date: 20100708
  Receipt Date: 20060812
  Transmission Date: 20110219
  Serious: No
  Sender: FDA-Public Use
  Company Number: US-PFIZER INC-2006099909

PATIENT
  Sex: Female
  Weight: 68.04 kg

DRUGS (5)
  1. CHANTIX [Suspect]
     Dates: start: 20060801
  2. ZETIA [Concomitant]
  3. ALBUTEROL [Concomitant]
  4. FORADIL [Concomitant]
  5. FLOVENT [Concomitant]

REACTIONS (2)
  - HEADACHE [None]
  - NAUSEA [None]
